FAERS Safety Report 5062419-8 (Version None)
Quarter: 2006Q3

REPORT INFORMATION
  Report Type: 
  Country: None (occurrence: None)
  Receive Date: 20060721
  Receipt Date: 20060712
  Transmission Date: 20061208
  Serious: Yes (Hospitalization, Other)
  Sender: FDA-Public Use
  Company Number: HQWYE002517JUL06

PATIENT
  Age: 62 Year
  Sex: Male

DRUGS (1)
  1. ROFERON-A [Suspect]
     Indication: RENAL CELL CARCINOMA STAGE UNSPECIFIED
     Dosage: 18 MU 3 PER WEEK SC
     Route: 058
     Dates: start: 20040616

REACTIONS (2)
  - AMNESIA [None]
  - ENCEPHALOPATHY [None]
